FAERS Safety Report 8323157 (Version 4)
Quarter: 2018Q3

REPORT INFORMATION
  Report Type: Report from Study
  Country: DE (occurrence: DE)
  Receive Date: 20120105
  Receipt Date: 20180824
  Transmission Date: 20181010
  Serious: Yes (Death, Hospitalization)
  Sender: FDA-Public Use
  Company Number: DE-ROCHE-1011853

PATIENT
  Age: 67 Year
  Sex: Female
  Weight: 68 kg

DRUGS (4)
  1. TAXOL [Concomitant]
     Active Substance: PACLITAXEL
     Indication: BREAST CANCER METASTATIC
     Route: 065
     Dates: start: 20110902, end: 20111028
  2. PACLITAXEL. [Concomitant]
     Active Substance: PACLITAXEL
     Indication: BREAST CANCER METASTATIC
     Route: 065
     Dates: start: 20110902, end: 20111028
  3. BEVACIZUMAB. [Suspect]
     Active Substance: BEVACIZUMAB
     Indication: BREAST CANCER METASTATIC
     Route: 065
     Dates: start: 20110902, end: 20111028
  4. DESMOPRESSIN [Concomitant]
     Active Substance: DESMOPRESSIN
     Indication: DIABETES INSIPIDUS

REACTIONS (8)
  - Hypotension [Fatal]
  - Nausea [Fatal]
  - Diabetes insipidus [Recovered/Resolved]
  - Circulatory collapse [Fatal]
  - Vomiting [Fatal]
  - Hyponatraemia [Fatal]
  - Hypokalaemia [Fatal]
  - Adrenocorticotropic hormone deficiency [Fatal]

NARRATIVE: CASE EVENT DATE: 20110912
